FAERS Safety Report 8134965-1 (Version None)
Quarter: 2012Q1

REPORT INFORMATION
  Report Type: 
  Country: None (occurrence: None)
  Receive Date: 20120210
  Receipt Date: 20120131
  Transmission Date: 20120608
  Serious: Yes (Other)
  Sender: FDA-Public Use
  Company Number: 1186664

PATIENT
  Age: 82 Year
  Sex: Male
  Weight: 60 kg

DRUGS (3)
  1. (ARBEKACIN SULFATE) [Concomitant]
  2. VANCOMYCIN HYDROCHLORIDE [Suspect]
     Indication: LUNG ABSCESS
     Dosage: .5 G GRAM(S), INTRAVENOUS DRIP
     Route: 041
     Dates: start: 20110309, end: 20110309
  3. CEFOPERAZONE SODIUM/SULBACTAM SODIUM) [Concomitant]

REACTIONS (1)
  - DRUG ERUPTION [None]
